FAERS Safety Report 6201342-X (Version None)
Quarter: 2009Q2

REPORT INFORMATION
  Report Type: 
  Country: None (occurrence: None)
  Receive Date: 20090526
  Receipt Date: 20090518
  Transmission Date: 20091009
  Serious: Yes (Other)
  Sender: FDA-Public Use
  Company Number: PHHY2009GB19734

PATIENT
  Sex: Male

DRUGS (2)
  1. TEGRETOL [Suspect]
     Indication: EPILEPSY
  2. TRILEPTAL [Suspect]
     Dosage: 300 MG, BID

REACTIONS (4)
  - ARTHRALGIA [None]
  - EPILEPSY [None]
  - OEDEMA PERIPHERAL [None]
  - PAIN IN EXTREMITY [None]
